FAERS Safety Report 14847746 (Version 1)
Quarter: 2018Q2

REPORT INFORMATION
  Report Type: Spontaneous
  Country: GB (occurrence: GB)
  Receive Date: 20180504
  Receipt Date: 20180504
  Transmission Date: 20180711
  Serious: Yes (Other)
  Sender: FDA-Public Use
  Company Number: GB-PFIZER INC-2018178271

PATIENT
  Age: 39 Year
  Sex: Female
  Weight: 83 kg

DRUGS (2)
  1. TRAMADOL. [Concomitant]
     Active Substance: TRAMADOL
     Dosage: UNK
  2. LYRICA [Suspect]
     Active Substance: PREGABALIN
     Indication: SPINAL PAIN
     Dosage: 50 MG, 1X/DAY
     Route: 048
     Dates: start: 20180227, end: 20180228

REACTIONS (16)
  - Sensory disturbance [Recovered/Resolved]
  - Bladder cancer [Recovered/Resolved]
  - Hunger [Recovered/Resolved]
  - Paraesthesia [Recovered/Resolved]
  - Fatigue [Recovered/Resolved]
  - Emotional disorder [Recovered/Resolved with Sequelae]
  - Tearfulness [Recovered/Resolved with Sequelae]
  - Vomiting [Recovered/Resolved]
  - Pain [Recovered/Resolved]
  - Ataxia [Recovered/Resolved with Sequelae]
  - Hot flush [Recovered/Resolved]
  - Anosmia [Recovered/Resolved]
  - Dizziness [Recovered/Resolved with Sequelae]
  - Nausea [Recovered/Resolved]
  - Confusional state [Recovered/Resolved with Sequelae]
  - Dissociation [Recovered/Resolved with Sequelae]

NARRATIVE: CASE EVENT DATE: 20180228
